FAERS Safety Report 10346234 (Version 1)
Quarter: 2014Q3

REPORT INFORMATION
  Report Type: Spontaneous
  Country: GB (occurrence: GB)
  Receive Date: 20140728
  Receipt Date: 20140728
  Transmission Date: 20150326
  Serious: Yes (Congenital Anomaly, Other)
  Sender: FDA-Public Use
  Company Number: GB-ABBVIE-14P-167-1265448-00

PATIENT
  Age: 1 Day
  Sex: Male

DRUGS (1)
  1. EPILIM [Suspect]
     Active Substance: VALPROATE SODIUM
     Indication: MATERNAL EXPOSURE TIMING UNSPECIFIED
     Route: 064

REACTIONS (13)
  - Drug withdrawal syndrome neonatal [Unknown]
  - Balance disorder [Unknown]
  - Floppy infant [Unknown]
  - Foetal anticonvulsant syndrome [Unknown]
  - Unresponsive to stimuli [Unknown]
  - Speech disorder developmental [Unknown]
  - Attention deficit/hyperactivity disorder [Unknown]
  - Foetal exposure during pregnancy [Unknown]
  - Feeding disorder neonatal [Unknown]
  - Learning disorder [Unknown]
  - Pain in extremity [Unknown]
  - Tremor [Unknown]
  - Developmental delay [Unknown]
